FAERS Safety Report 25343973 (Version 1)
Quarter: 2025Q2

REPORT INFORMATION
  Report Type: Spontaneous
  Country: US (occurrence: US)
  Receive Date: 20250521
  Receipt Date: 20250521
  Transmission Date: 20250716
  Serious: No
  Sender: SANOFI AVENTIS
  Company Number: US-SA-2025SA144974

PATIENT
  Sex: Female

DRUGS (9)
  1. LOVENOX [Suspect]
     Active Substance: ENOXAPARIN SODIUM
     Dates: start: 2009
  2. GABAPENTIN [Concomitant]
     Active Substance: GABAPENTIN
  3. CALCIUM [Concomitant]
     Active Substance: CALCIUM
  4. BUPROPION [Concomitant]
     Active Substance: BUPROPION
  5. ZYRTEC [Concomitant]
     Active Substance: CETIRIZINE HYDROCHLORIDE
  6. VITAMIN D3 [Concomitant]
     Active Substance: CHOLECALCIFEROL
  7. LORAZEPAM [Concomitant]
     Active Substance: LORAZEPAM
  8. CANNABIS SATIVA SUBSP. INDICA TOP [Concomitant]
     Active Substance: CANNABIS SATIVA SUBSP. INDICA TOP
  9. OCREVUS [Concomitant]
     Active Substance: OCRELIZUMAB

REACTIONS (1)
  - Urticaria [Unknown]
